FAERS Safety Report 18512831 (Version 1)
Quarter: 2020Q4

REPORT INFORMATION
  Report Type: Spontaneous
  Country: GB (occurrence: GB)
  Receive Date: 20201117
  Receipt Date: 20201117
  Transmission Date: 20210114
  Serious: Yes (Hospitalization, Other)
  Sender: FDA-Public Use
  Company Number: GB-MYLANLABS-2020M1094478

PATIENT
  Age: 17 Year
  Sex: Female
  Weight: 69.85 kg

DRUGS (1)
  1. ISOTRETINOIN. [Suspect]
     Active Substance: ISOTRETINOIN
     Indication: ACNE
     Dosage: UNK
     Route: 048
     Dates: start: 201707, end: 201801

REACTIONS (3)
  - Panic attack [Recovered/Resolved with Sequelae]
  - Withdrawal syndrome [Unknown]
  - Depression [Recovered/Resolved with Sequelae]
